FAERS Safety Report 5206140-1 (Version None)
Quarter: 2007Q1

REPORT INFORMATION
  Report Type: 
  Country: None (occurrence: None)
  Receive Date: 20070108
  Receipt Date: 20061228
  Transmission Date: 20070707
  Serious: Yes (Hospitalization)
  Sender: FDA-Public Use
  Company Number: 15386

PATIENT
  Age: 54 Year
  Sex: Female
  Weight: 57.4 kg

DRUGS (13)
  1. CYTARABINE [Suspect]
     Indication: ACUTE MYELOID LEUKAEMIA
     Dosage: 2.35 G QD IV
     Route: 042
     Dates: start: 20061117, end: 20061121
  2. CYTARABINE [Suspect]
     Indication: LEUKAEMIA RECURRENT
     Dosage: 2.35 G QD IV
     Route: 042
     Dates: start: 20061117, end: 20061121
  3. CEP-701 [Suspect]
     Indication: ACUTE MYELOID LEUKAEMIA
     Dosage: 80 MG BID PO
     Route: 048
     Dates: start: 20061124, end: 20061208
  4. CEP-701 [Suspect]
     Indication: LEUKAEMIA RECURRENT
     Dosage: 80 MG BID PO
     Route: 048
     Dates: start: 20061124, end: 20061208
  5. CEP-701 [Suspect]
     Indication: ACUTE MYELOID LEUKAEMIA
     Dosage: 80 MG DAILY PO
     Route: 048
     Dates: start: 20061209, end: 20061209
  6. CEP-701 [Suspect]
     Indication: LEUKAEMIA RECURRENT
     Dosage: 80 MG DAILY PO
     Route: 048
     Dates: start: 20061209, end: 20061209
  7. CEP-701 [Suspect]
     Indication: ACUTE MYELOID LEUKAEMIA
     Dosage: 80 MD BID PO
     Route: 048
     Dates: start: 20061210
  8. CEP-701 [Suspect]
     Indication: LEUKAEMIA RECURRENT
     Dosage: 80 MD BID PO
     Route: 048
     Dates: start: 20061210
  9. TAZOBACTAM/PIPERACILLIN [Concomitant]
  10. POTASSIUM ACETATE [Concomitant]
  11. METOCLOPRAMIDE [Concomitant]
  12. RANITIDINE [Concomitant]
  13. FUROSEMIDE [Concomitant]

REACTIONS (1)
  - FEBRILE NEUTROPENIA [None]
